FAERS Safety Report 11684524 (Version 1)
Quarter: 2015Q4

REPORT INFORMATION
  Report Type: Other
  Country: DE (occurrence: US)
  Receive Date: 20151029
  Receipt Date: 20151029
  Transmission Date: 20160304
  Serious: Yes (Hospitalization)
  Sender: FDA-Public Use
  Company Number: US-FRI-1000080490

PATIENT
  Age: 72 Year
  Sex: Male

DRUGS (2)
  1. MEMANTINE. [Suspect]
     Active Substance: MEMANTINE
     Indication: VASCULAR DEMENTIA
     Dosage: 20 MG
  2. MEMANTINE. [Suspect]
     Active Substance: MEMANTINE
     Dosage: MEMANTINE DOSE WAS TAPERED OVER THE COURSE OF TWO DAYS BEFORE BEING DISCONTINUED ALTOGETHER

REACTIONS (2)
  - Off label use [Recovered/Resolved]
  - Delirium [Recovered/Resolved]
